FAERS Safety Report 17064906 (Version 2)
Quarter: 2019Q4

REPORT INFORMATION
  Report Type: Spontaneous
  Country: JP (occurrence: JP)
  Receive Date: 20191122
  Receipt Date: 20191127
  Transmission Date: 20200122
  Serious: Yes (Death, Hospitalization, Other)
  Sender: FDA-Public Use
  Company Number: JP-ACTELION-A-CH2019-198630

PATIENT
  Age: 82 Year
  Sex: Female

DRUGS (3)
  1. UPTRAVI [Suspect]
     Active Substance: SELEXIPAG
     Indication: PULMONARY ARTERIAL HYPERTENSION
     Dosage: UNK
     Route: 048
     Dates: start: 20190918, end: 20191030
  2. SAMSCA [Concomitant]
     Active Substance: TOLVAPTAN
     Dosage: UNK
     Dates: end: 2019
  3. SAMSCA [Concomitant]
     Active Substance: TOLVAPTAN
     Dosage: UNK
     Dates: start: 2019, end: 2019

REACTIONS (5)
  - Stevens-Johnson syndrome [Unknown]
  - Pneumonia [Unknown]
  - Erythema [Unknown]
  - Haemolytic anaemia [Fatal]
  - Skin ulcer [Unknown]

NARRATIVE: CASE EVENT DATE: 2019
